FAERS Safety Report 9283405 (Version 1)
Quarter: 2013Q2

REPORT INFORMATION
  Report Type: Spontaneous
  Country: US (occurrence: US)
  Receive Date: 20130510
  Receipt Date: 20130510
  Transmission Date: 20140414
  Serious: No
  Sender: FDA-Public Use
  Company Number: US-GLAXOSMITHKLINE-A1005927A

PATIENT
  Sex: Female

DRUGS (4)
  1. TYKERB [Suspect]
     Route: 065
  2. ARZERRA [Suspect]
     Route: 065
  3. ALBUTEROL [Suspect]
     Route: 065
  4. ADVAIR [Suspect]
     Route: 065

REACTIONS (1)
  - Drug ineffective [Unknown]
